FAERS Safety Report 19252387 (Version 1)
Quarter: 2021Q2

REPORT INFORMATION
  Report Type: Spontaneous
  Country: US (occurrence: US)
  Receive Date: 20210512
  Receipt Date: 20210512
  Transmission Date: 20210717
  Serious: Yes (Hospitalization)
  Sender: FDA-Public Use
  Company Number: None

PATIENT
  Sex: Male

DRUGS (10)
  1. ACETAMINOPHN [Concomitant]
  2. LEVOCANITIN [Concomitant]
  3. PEDIA=LAX [Concomitant]
  4. POLY?VI?SOL IRON [Concomitant]
  5. REVATIO [Suspect]
     Active Substance: SILDENAFIL CITRATE
     Indication: PULMONARY HYPERTENSION
     Dosage: ?OTHER DOSE:4MG (O.4ML); Q8HR PO?
     Route: 048
  6. DIURIL [Concomitant]
     Active Substance: CHLOROTHIAZIDE
  7. ENOXAPARIN [Concomitant]
     Active Substance: ENOXAPARIN
  8. NYSTAIN [Concomitant]
     Active Substance: NYSTATIN
  9. SILDENAFIL. [Concomitant]
     Active Substance: SILDENAFIL
  10. VITAMIN D3 [Concomitant]
     Active Substance: CHOLECALCIFEROL

REACTIONS (1)
  - Pulmonary arterial hypertension [None]
